FAERS Safety Report 9064116 (Version 1)
Quarter: 2013Q1

REPORT INFORMATION
  Report Type: Spontaneous
  Country: ES (occurrence: ES)
  Receive Date: 20130213
  Receipt Date: 20130213
  Transmission Date: 20140127
  Serious: Yes (Death, Life-Threatening)
  Sender: FDA-Public Use
  Company Number: ES-BAYER-2013-010224

PATIENT
  Age: 51 Year
  Sex: Female

DRUGS (1)
  1. ACETYLSALICYLIC ACID [Suspect]
     Dosage: 100 MG/24HR, UNK

REACTIONS (2)
  - Haemorrhagic transformation stroke [None]
  - Brain hypoxia [Fatal]
